FAERS Safety Report 13418749 (Version 2)
Quarter: 2017Q2

REPORT INFORMATION
  Report Type: Spontaneous
  Country: IT (occurrence: IT)
  Receive Date: 20170406
  Receipt Date: 20170413
  Transmission Date: 20170830
  Serious: Yes (Hospitalization, Other)
  Sender: FDA-Public Use
  Company Number: PHHY2017IT046409

PATIENT
  Age: 61 Year
  Sex: Male

DRUGS (5)
  1. METFORMIN [Suspect]
     Active Substance: METFORMIN HYDROCHLORIDE
     Indication: TYPE 2 DIABETES MELLITUS
     Route: 048
  2. INSULIN [Suspect]
     Active Substance: INSULIN NOS
     Dosage: UNK
     Route: 042
  3. DAPAGLIFLOZIN [Suspect]
     Active Substance: DAPAGLIFLOZIN
     Route: 048
  4. DAPAGLIFLOZIN [Suspect]
     Active Substance: DAPAGLIFLOZIN
     Indication: TYPE 2 DIABETES MELLITUS
     Route: 048
  5. INSULIN [Suspect]
     Active Substance: INSULIN NOS
     Indication: TYPE 2 DIABETES MELLITUS
     Dosage: UNK
     Route: 048

REACTIONS (7)
  - Ketonuria [Unknown]
  - Diabetes mellitus inadequate control [Unknown]
  - Diabetic ketoacidosis [Recovered/Resolved]
  - Blood lactic acid increased [Unknown]
  - Fatigue [Unknown]
  - Somnolence [Unknown]
  - Nausea [Unknown]
